FAERS Safety Report 21960370 (Version 15)
Quarter: 2023Q4

REPORT INFORMATION
  Report Type: Report from Study
  Country: US (occurrence: US)
  Receive Date: 20230207
  Receipt Date: 20231013
  Transmission Date: 20240110
  Serious: Yes (Other)
  Sender: FDA-Public Use
  Company Number: US-GLAXOSMITHKLINE-US2023AMR015711

PATIENT
  Sex: Female

DRUGS (10)
  1. NIRAPARIB [Suspect]
     Active Substance: NIRAPARIB
     Indication: Ovarian cancer
     Dosage: 200 MG, QD
     Dates: start: 20230118
  2. NIRAPARIB [Suspect]
     Active Substance: NIRAPARIB
     Dosage: 100 MG, QD
     Route: 048
     Dates: start: 20230801
  3. NIRAPARIB [Suspect]
     Active Substance: NIRAPARIB
     Indication: Ovarian cancer
     Dosage: 200 MG, QD (1 X 200MG TABLET)
     Route: 048
  4. MENTHOL [Suspect]
     Active Substance: MENTHOL
     Indication: Pain
     Dosage: UNK
  5. AVASTIN [Concomitant]
     Active Substance: BEVACIZUMAB
     Indication: Ovarian cancer
     Dosage: UNK, INFUSION EVERY 3 WEEKS
  6. PANTOPRAZOLE [Concomitant]
     Active Substance: PANTOPRAZOLE
     Indication: Product used for unknown indication
     Dosage: 40 MG
  7. PROCHLORPERAZINE [Concomitant]
     Active Substance: PROCHLORPERAZINE
     Indication: Product used for unknown indication
     Dosage: UNK
  8. BACLOFEN [Concomitant]
     Active Substance: BACLOFEN
     Indication: Product used for unknown indication
     Dosage: 10 MG
  9. ACETAMINOPHEN WITH CODEINE (TYLENOL 3) [Concomitant]
     Indication: Product used for unknown indication
     Dosage: UNK
  10. ALLEGRA [Concomitant]
     Active Substance: FEXOFENADINE HYDROCHLORIDE
     Indication: Product used for unknown indication
     Dosage: UNK

REACTIONS (28)
  - Malignant neoplasm progression [Not Recovered/Not Resolved]
  - Muscle discomfort [Recovering/Resolving]
  - Blood pressure increased [Unknown]
  - Myalgia [Unknown]
  - Fatigue [Not Recovered/Not Resolved]
  - Muscular weakness [Unknown]
  - Headache [Unknown]
  - Rash [Unknown]
  - Secretion discharge [Unknown]
  - Cough [Recovering/Resolving]
  - Nasal dryness [Unknown]
  - Pain [Unknown]
  - Neck pain [Unknown]
  - Drainage [Not Recovered/Not Resolved]
  - Dyspnoea [Unknown]
  - Multiple allergies [Not Recovered/Not Resolved]
  - Productive cough [Unknown]
  - Diarrhoea [Recovering/Resolving]
  - Hypoaesthesia [Unknown]
  - Hernia [Unknown]
  - Platelet count decreased [Unknown]
  - Muscle spasms [Not Recovered/Not Resolved]
  - Nausea [Recovering/Resolving]
  - Dry eye [Not Recovered/Not Resolved]
  - Weight increased [Not Recovered/Not Resolved]
  - Vitamin B12 decreased [Unknown]
  - Arthralgia [Unknown]
  - Product dose omission issue [Unknown]

NARRATIVE: CASE EVENT DATE: 20230101
